FAERS Safety Report 10442262 (Version 2)
Quarter: 2014Q3

REPORT INFORMATION
  Report Type: Spontaneous
  Country: CA (occurrence: CA)
  Receive Date: 20140909
  Receipt Date: 20140909
  Transmission Date: 20150326
  Serious: Yes (Other)
  Sender: FDA-Public Use
  Company Number: CA-PFIZER INC-2014044351

PATIENT
  Age: 29 Year
  Sex: Male

DRUGS (1)
  1. SIROLIMUS. [Suspect]
     Active Substance: SIROLIMUS
     Indication: SARCOMA
     Dosage: 4 MG, ONCE DAILY
     Route: 048
     Dates: start: 201201

REACTIONS (3)
  - Disease progression [Unknown]
  - Sarcoma [Unknown]
  - Off label use [Unknown]
